FAERS Safety Report 5524295-6 (Version None)
Quarter: 2007Q4

REPORT INFORMATION
  Report Type: 
  Country: None (occurrence: None)
  Receive Date: 20071121
  Receipt Date: 20071109
  Transmission Date: 20080405
  Serious: Yes (Hospitalization, Other)
  Sender: FDA-Public Use
  Company Number: US-PFIZER INC-2007095368

PATIENT
  Sex: Female

DRUGS (17)
  1. LYRICA [Suspect]
     Indication: FIBROMYALGIA
  2. ACETYLSALICYLIC ACID SRT [Concomitant]
  3. PREMARIN [Concomitant]
  4. NEXIUM [Concomitant]
  5. DARVOCET [Concomitant]
  6. CLARINEX [Concomitant]
  7. MONTELUKAST SODIUM [Concomitant]
  8. QUININE SULFATE [Concomitant]
  9. AVAPRO [Concomitant]
  10. IMITREX [Concomitant]
  11. LASIX [Concomitant]
  12. LAMICTAL [Concomitant]
  13. PREMPRO [Concomitant]
  14. ZOCOR [Concomitant]
  15. FOSAMAX [Concomitant]
  16. PREVACID [Concomitant]
  17. DRUG, UNSPECIFIED [Concomitant]

REACTIONS (1)
  - SURGERY [None]
